FAERS Safety Report 21407544 (Version 3)
Quarter: 2022Q4

REPORT INFORMATION
  Report Type: Spontaneous
  Country: MX (occurrence: MX)
  Receive Date: 20221004
  Receipt Date: 20221118
  Transmission Date: 20230113
  Serious: Yes (Death, Life-Threatening, Hospitalization, Other)
  Sender: FDA-Public Use
  Company Number: MX-LUNDBECK-DKLU3053123

PATIENT
  Age: 2 Year
  Sex: Male
  Weight: 28 kg

DRUGS (4)
  1. CLOBAZAM [Suspect]
     Active Substance: CLOBAZAM
     Indication: Seizure
     Route: 048
     Dates: start: 201604
  2. CLOBAZAM [Suspect]
     Active Substance: CLOBAZAM
     Dosage: 1/2 TABLET IN THE MORNING AND 1 AT NIGHT
     Route: 048
  3. COVID VACCINE [Concomitant]
     Indication: Product used for unknown indication
     Route: 065
  4. COVID VACCINE [Concomitant]
     Route: 065
     Dates: start: 20221012

REACTIONS (17)
  - Circulatory collapse [Fatal]
  - Pneumonia [Fatal]
  - Respiratory arrest [Unknown]
  - Unresponsive to stimuli [Unknown]
  - Oxygen saturation decreased [Unknown]
  - Aspiration [Unknown]
  - Dyspnoea [Unknown]
  - Seizure [Unknown]
  - Peripheral coldness [Unknown]
  - Malaise [Unknown]
  - Agitation [Unknown]
  - COVID-19 [Recovered/Resolved with Sequelae]
  - Lung disorder [Unknown]
  - Pyrexia [Unknown]
  - Asthenia [Unknown]
  - Off label use [Unknown]
  - Off label use [Unknown]

NARRATIVE: CASE EVENT DATE: 20160401
